FAERS Safety Report 17741696 (Version 2)
Quarter: 2020Q2

REPORT INFORMATION
  Report Type: Report from Study
  Country: CO (occurrence: CO)
  Receive Date: 20200504
  Receipt Date: 20200610
  Transmission Date: 20200714
  Serious: Yes (Other)
  Sender: FDA-Public Use
  Company Number: NVSC2016CO002478

PATIENT
  Age: 66 Year

DRUGS (1)
  1. TASIGNA [Suspect]
     Active Substance: NILOTINIB
     Indication: CHRONIC MYELOID LEUKAEMIA
     Dosage: UNK MG
     Route: 065

REACTIONS (9)
  - Lipids abnormal [Unknown]
  - Transaminases increased [Unknown]
  - Hyperbilirubinaemia [Unknown]
  - Hepatomegaly [Recovered/Resolved]
  - Leukopenia [Unknown]
  - Cryptogenic cirrhosis [Unknown]
  - Cytogenetic analysis abnormal [Unknown]
  - Hepatic cirrhosis [Unknown]
  - Thrombocytopenia [Unknown]
